FAERS Safety Report 18868503 (Version 2)
Quarter: 2021Q1

REPORT INFORMATION
  Report Type: Report from Study
  Country: US (occurrence: US)
  Receive Date: 20210209
  Receipt Date: 20210325
  Transmission Date: 20210420
  Serious: Yes (Hospitalization)
  Sender: FDA-Public Use
  Company Number: US-JNJFOC-20210201881

PATIENT
  Age: 40 Year
  Sex: Male
  Weight: 71.28 kg

DRUGS (8)
  1. MIRTAZAPINE. [Concomitant]
     Active Substance: MIRTAZAPINE
  2. CLONIDINE. [Concomitant]
     Active Substance: CLONIDINE
     Indication: ANXIETY
  3. SPRAVATO [Suspect]
     Active Substance: ESKETAMINE
     Dates: start: 20210128, end: 20210128
  4. REXULTI [Concomitant]
     Active Substance: BREXPIPRAZOLE
     Indication: ANXIETY
     Dates: start: 20201217, end: 20201229
  5. PREGABALIN. [Concomitant]
     Active Substance: PREGABALIN
     Indication: NEURALGIA
  6. SPRAVATO [Suspect]
     Active Substance: ESKETAMINE
     Indication: ANXIETY
     Dosage: 9 TOTAL DOSES
     Dates: start: 20201112, end: 20210122
  7. CLONIDINE. [Concomitant]
     Active Substance: CLONIDINE
     Indication: HYPERTENSION
  8. SPRAVATO [Suspect]
     Active Substance: ESKETAMINE
     Indication: DEPRESSION
     Dosage: 2 TOTAL DOSES
     Dates: start: 20201103, end: 20201105

REACTIONS (6)
  - Dyspnoea [Recovered/Resolved]
  - Heart rate increased [Recovered/Resolved]
  - Panic attack [Recovered/Resolved]
  - Blood glucose increased [Recovered/Resolved]
  - Dissociation [Recovered/Resolved]
  - Blood creatinine increased [Recovered/Resolved]

NARRATIVE: CASE EVENT DATE: 202012
